FAERS Safety Report 15664960 (Version 2)
Quarter: 2018Q4

REPORT INFORMATION
  Report Type: Spontaneous
  Country: US (occurrence: US)
  Receive Date: 20181128
  Receipt Date: 20181213
  Transmission Date: 20190205
  Serious: No
  Sender: FDA-Public Use
  Company Number: US-SYNEX-T201805158

PATIENT
  Sex: Male
  Weight: 103 kg

DRUGS (2)
  1. INOMAX [Suspect]
     Active Substance: NITRIC OXIDE
     Dosage: 20 PPM
     Route: 065
     Dates: start: 20181111, end: 20181114
  2. INOMAX [Suspect]
     Active Substance: NITRIC OXIDE
     Indication: ACUTE MYOCARDIAL INFARCTION
     Dosage: 20 PPM
     Route: 065
     Dates: start: 20181105, end: 20181109

REACTIONS (2)
  - Product use issue [Unknown]
  - Product used for unknown indication [Unknown]

NARRATIVE: CASE EVENT DATE: 2018
